FAERS Safety Report 5735832-0 (Version None)
Quarter: 2008Q2

REPORT INFORMATION
  Report Type: 
  Country: None (occurrence: None)
  Receive Date: 20080508
  Receipt Date: 20080508
  Transmission Date: 20081010
  Serious: Yes (Other)
  Sender: FDA-Public Use
  Company Number: None

PATIENT
  Sex: Female
  Weight: 62.1428 kg

DRUGS (1)
  1. CREST PRO HEALTH MOUTHWASH [Suspect]
     Indication: TOOTH DISCOLOURATION
     Dosage: MOUTH FULL 1 TO 2 TIMES/DAY
     Dates: start: 20061001, end: 20080506

REACTIONS (1)
  - TOOTH DISCOLOURATION [None]
